FAERS Safety Report 7821116-3 (Version None)
Quarter: 2011Q4

REPORT INFORMATION
  Report Type: 
  Country: None (occurrence: None)
  Receive Date: 20111018
  Receipt Date: 20111012
  Transmission Date: 20120403
  Serious: No
  Sender: FDA-Public Use
  Company Number: US-PFIZER INC-2011228152

PATIENT
  Sex: Female

DRUGS (1)
  1. VISTARIL [Suspect]
     Dosage: UNK
     Route: 042
     Dates: start: 20110921

REACTIONS (3)
  - VEIN PAIN [None]
  - CHEST PAIN [None]
  - CHEST DISCOMFORT [None]
